APPROVED DRUG PRODUCT: OXICONAZOLE NITRATE
Active Ingredient: OXICONAZOLE NITRATE
Strength: EQ 1% BASE
Dosage Form/Route: CREAM;TOPICAL
Application: A205076 | Product #001 | TE Code: AB
Applicant: SUN PHARMA CANADA INC
Approved: Mar 7, 2016 | RLD: No | RS: No | Type: RX